FAERS Safety Report 5418348-0 (Version None)
Quarter: 2007Q3

REPORT INFORMATION
  Report Type: 
  Country: None (occurrence: None)
  Receive Date: 20070817
  Receipt Date: 20070807
  Transmission Date: 20080115
  Serious: Yes (Hospitalization)
  Sender: FDA-Public Use
  Company Number: JP-SANOFI-SYNTHELABO-F01200700978

PATIENT
  Sex: Female
  Weight: 38 kg

DRUGS (8)
  1. TICLOPIDINE HCL [Concomitant]
     Route: 065
     Dates: start: 20060630, end: 20070418
  2. DETRUSITOL [Concomitant]
     Route: 048
     Dates: start: 20070419, end: 20070701
  3. MUCOSTA [Concomitant]
     Route: 048
     Dates: start: 20070419, end: 20070701
  4. MERISLON [Concomitant]
     Route: 048
     Dates: start: 20070419, end: 20070701
  5. JUVELA NICOTINATE [Concomitant]
     Indication: HYPERLIPIDAEMIA
     Route: 048
     Dates: start: 20070419, end: 20070701
  6. DILTIAZEM HCL [Concomitant]
     Indication: HYPERTENSION
     Route: 048
     Dates: start: 20070419, end: 20070701
  7. ASPIRIN [Concomitant]
     Indication: ANTIPLATELET THERAPY
     Route: 048
     Dates: start: 20070419, end: 20070701
  8. CLOPIDOGREL [Suspect]
     Indication: LACUNAR INFARCTION
     Dosage: 50 MG
     Route: 048
     Dates: start: 20070419, end: 20070701

REACTIONS (1)
  - DEHYDRATION [None]
